FAERS Safety Report 6315260-X (Version None)
Quarter: 2009Q3

REPORT INFORMATION
  Report Type: 
  Country: None (occurrence: None)
  Receive Date: 20090819
  Receipt Date: 20090813
  Transmission Date: 20100115
  Serious: Yes (Other)
  Sender: FDA-Public Use
  Company Number: PHHY2009CA05177

PATIENT
  Sex: Female

DRUGS (1)
  1. SANDOSTATIN LAR [Suspect]
     Indication: CARCINOID TUMOUR
     Dosage: 30 MG EVERY 4 WEEKS
     Route: 030
     Dates: start: 20050222

REACTIONS (5)
  - BACK PAIN [None]
  - CONTUSION [None]
  - FALL [None]
  - RIB FRACTURE [None]
  - ROAD TRAFFIC ACCIDENT [None]
